FAERS Safety Report 7880165-X (Version None)
Quarter: 2011Q4

REPORT INFORMATION
  Report Type: 
  Country: None (occurrence: None)
  Receive Date: 20111101
  Receipt Date: 20111027
  Transmission Date: 20120403
  Serious: No
  Sender: FDA-Public Use
  Company Number: US-PFIZER INC-2011263366

PATIENT
  Sex: Female
  Weight: 68.027 kg

DRUGS (3)
  1. NEURONTIN [Suspect]
     Indication: NERVE INJURY
  2. NEURONTIN [Suspect]
     Indication: CONVULSION
     Dosage: 600 MG, 3X/DAY
     Route: 048
     Dates: start: 20110301
  3. ACETAMINOPHEN/DEXTROMETHORPHAN/DOXYLAMINE/PSEUDOEPHEDRINE [Concomitant]
     Indication: SLEEP DISORDER
     Dosage: UNK, AS NEEDED

REACTIONS (1)
  - DRUG SCREEN POSITIVE [None]
